FAERS Safety Report 23654960 (Version 1)
Quarter: 2024Q1

REPORT INFORMATION
  Report Type: Spontaneous
  Country: US (occurrence: US)
  Receive Date: 20240320
  Receipt Date: 20240320
  Transmission Date: 20240410
  Serious: Yes (Death)
  Sender: FDA-Public Use
  Company Number: US-BEH-2024170059

PATIENT
  Age: 30 Year
  Sex: Male

DRUGS (3)
  1. HIZENTRA [Suspect]
     Active Substance: HUMAN IMMUNOGLOBULIN G
     Indication: Graft versus host disease
     Dosage: 5 GRAM, QW
     Route: 058
     Dates: start: 201611
  2. NIVESTYM [FILGRASTIM] [Concomitant]
     Route: 065
  3. JAKAFI [Concomitant]
     Active Substance: RUXOLITINIB
     Route: 065

REACTIONS (3)
  - Death [Fatal]
  - Off label use [Unknown]
  - No adverse event [Unknown]

NARRATIVE: CASE EVENT DATE: 20240117
